FAERS Safety Report 10678625 (Version 6)
Quarter: 2018Q3

REPORT INFORMATION
  Report Type: Spontaneous
  Country: US (occurrence: US)
  Receive Date: 20141229
  Receipt Date: 20180924
  Transmission Date: 20181010
  Serious: No
  Sender: FDA-Public Use
  Company Number: US-PFIZER INC-2014004381

PATIENT
  Age: 54 Year
  Sex: Female

DRUGS (1)
  1. EFFEXOR XR [Suspect]
     Active Substance: VENLAFAXINE HYDROCHLORIDE
     Indication: DEPRESSION
     Dosage: 150 MG, 2X/DAY (2 CAPSULES BY MOUTH 300MG TOTAL/DAY)
     Route: 048

REACTIONS (2)
  - Prescribed overdose [Not Recovered/Not Resolved]
  - Headache [Unknown]
